FAERS Safety Report 15737068 (Version 2)
Quarter: 2018Q4

REPORT INFORMATION
  Report Type: Spontaneous
  Country: US (occurrence: US)
  Receive Date: 20181218
  Receipt Date: 20181221
  Transmission Date: 20190205
  Serious: No
  Sender: FDA-Public Use
  Company Number: US-BAUSCH-BL-2018-034318

PATIENT
  Sex: Female

DRUGS (2)
  1. UCERIS [Suspect]
     Active Substance: BUDESONIDE
     Indication: COLITIS MICROSCOPIC
     Route: 065
  2. UCERIS [Suspect]
     Active Substance: BUDESONIDE
     Indication: OFF LABEL USE
     Route: 065

REACTIONS (5)
  - Inability to afford medication [Unknown]
  - Intentional product use issue [Unknown]
  - Drug ineffective for unapproved indication [Unknown]
  - Product supply issue [Unknown]
  - Insurance issue [Unknown]
